FAERS Safety Report 9558997 (Version 1)
Quarter: 2013Q3

REPORT INFORMATION
  Report Type: Spontaneous
  Country: US (occurrence: US)
  Receive Date: 20130927
  Receipt Date: 20130927
  Transmission Date: 20140515
  Serious: No
  Sender: FDA-Public Use
  Company Number: US-BIOGENIDEC-2013BI089754

PATIENT
  Age: 56 Year
  Sex: Male

DRUGS (5)
  1. TYSABRI [Suspect]
     Indication: MULTIPLE SCLEROSIS
     Route: 042
     Dates: start: 20130722
  2. AVONEX [Concomitant]
     Indication: MULTIPLE SCLEROSIS
     Route: 030
  3. CIPRO [Concomitant]
     Indication: URINARY TRACT INFECTION
     Dates: start: 20130626, end: 20130808
  4. BACLOFEN [Concomitant]
     Indication: MUSCLE SPASMS
  5. TRAMADOL [Concomitant]
     Indication: PAIN

REACTIONS (6)
  - Urinary tract infection [Unknown]
  - Urinary sediment present [Not Recovered/Not Resolved]
  - Urine abnormality [Not Recovered/Not Resolved]
  - Catheter site pain [Not Recovered/Not Resolved]
  - Proteus infection [Unknown]
  - Enterococcal infection [Unknown]
